FAERS Safety Report 6390756-3 (Version None)
Quarter: 2009Q4

REPORT INFORMATION
  Report Type: 
  Country: None (occurrence: None)
  Receive Date: 20091006
  Receipt Date: 20090930
  Transmission Date: 20100525
  Serious: Yes (Death)
  Sender: FDA-Public Use
  Company Number: US-CELGENEUS-163-CCAZA-09100025

PATIENT
  Sex: Female
  Weight: 51.8 kg

DRUGS (2)
  1. AZACITIDINE INJECTABLE [Suspect]
     Route: 051
     Dates: start: 20090824, end: 20090831
  2. MIDOSTAURIN [Suspect]
     Route: 048
     Dates: start: 20090901, end: 20090914

REACTIONS (1)
  - ACUTE MYELOID LEUKAEMIA [None]
